FAERS Safety Report 9352327 (Version 2)
Quarter: 2013Q3

REPORT INFORMATION
  Report Type: Spontaneous
  Country: DE (occurrence: DE)
  Receive Date: 20130617
  Receipt Date: 20130725
  Transmission Date: 20140515
  Serious: Yes (Disabling)
  Sender: FDA-Public Use
  Company Number: DE-BAUSCH-BL-2013-003551

PATIENT
  Sex: Female

DRUGS (3)
  1. TIM-OPHTAL 0.25% SINE [Suspect]
     Indication: INTRAOCULAR PRESSURE INCREASED
     Route: 047
  2. TIM-OPHTAL 0.25% SINE [Suspect]
     Dosage: ONCE, IN THE EVENING
     Route: 047
     Dates: end: 201306
  3. TIM-OPHTAL 0.25% SINE [Suspect]
     Dosage: ONCE, IN THE EVENING
     Route: 047

REACTIONS (3)
  - Astigmatism [Not Recovered/Not Resolved]
  - Visual acuity reduced [Not Recovered/Not Resolved]
  - Diplopia [Not Recovered/Not Resolved]
